FAERS Safety Report 7516431-7 (Version None)
Quarter: 2011Q2

REPORT INFORMATION
  Report Type: 
  Country: None (occurrence: None)
  Receive Date: 20110601
  Receipt Date: 20110525
  Transmission Date: 20111010
  Serious: Yes (Congenital Anomaly, Other)
  Sender: FDA-Public Use
  Company Number: US-PFIZER INC-2011113499

PATIENT
  Sex: Female

DRUGS (3)
  1. EFFEXOR [Suspect]
     Dosage: UNK
     Route: 064
     Dates: start: 20000101
  2. PAXIL [Concomitant]
     Route: 064
  3. ZOLOFT [Concomitant]
     Route: 064

REACTIONS (3)
  - PATENT DUCTUS ARTERIOSUS [None]
  - VENTRICULAR SEPTAL DEFECT [None]
  - DRUG EXPOSURE DURING PREGNANCY [None]
